FAERS Safety Report 22032742 (Version 1)
Quarter: 2023Q1

REPORT INFORMATION
  Report Type: Spontaneous
  Country: US (occurrence: US)
  Receive Date: 20230224
  Receipt Date: 20230224
  Transmission Date: 20230418
  Serious: No
  Sender: FDA-Public Use
  Company Number: US-ABBVIE-4280158

PATIENT
  Sex: Male

DRUGS (2)
  1. LUPRON [Suspect]
     Active Substance: LEUPROLIDE ACETATE
     Indication: Product used for unknown indication
     Route: 065
  2. ENZALUTAMIDE [Suspect]
     Active Substance: ENZALUTAMIDE
     Indication: Product used for unknown indication
     Dosage: EXP.DT. 31-JUL-2024, 160 MG, ONCE DAILY (40 MG X 4 CAPSULES)?FORM STRENGTH: 40 MILLIGRAM
     Route: 048

REACTIONS (2)
  - Nasopharyngitis [Unknown]
  - Gynaecomastia [Unknown]
